FAERS Safety Report 6831844-4 (Version None)
Quarter: 2010Q3

REPORT INFORMATION
  Report Type: 
  Country: None (occurrence: None)
  Receive Date: 20100712
  Receipt Date: 20100630
  Transmission Date: 20110219
  Serious: Yes (Hospitalization)
  Sender: FDA-Public Use
  Company Number: FR-CELGENEUS-056-50794-10070088

PATIENT
  Sex: Male

DRUGS (4)
  1. VIDAZA [Suspect]
     Route: 058
     Dates: start: 20100208, end: 20100605
  2. NEORECORMON [Suspect]
     Route: 058
     Dates: start: 20100208
  3. EXJADE [Concomitant]
     Indication: PRODUCT USED FOR UNKNOWN INDICATION
     Route: 048
     Dates: start: 20080521
  4. HEXAQUINE [Concomitant]
     Indication: PRODUCT USED FOR UNKNOWN INDICATION
     Route: 048
     Dates: start: 20090520

REACTIONS (4)
  - BACK PAIN [None]
  - LUNG DISORDER [None]
  - NEUTROPENIA [None]
  - PYREXIA [None]
